FAERS Safety Report 7652835-X (Version None)
Quarter: 2011Q3

REPORT INFORMATION
  Report Type: 
  Country: None (occurrence: None)
  Receive Date: 20110803
  Receipt Date: 20110722
  Transmission Date: 20111222
  Serious: Yes (Hospitalization)
  Sender: FDA-Public Use
  Company Number: JP-UCBSA-037588

PATIENT
  Sex: Female

DRUGS (11)
  1. LANSOPRAZOLE [Concomitant]
     Dates: start: 20070904
  2. SODIUM HYALURONATE [Concomitant]
     Dosage: ADEQUATE DOSE
     Dates: start: 20100519
  3. METHOTREXATE [Concomitant]
     Dates: start: 20091013, end: 20110420
  4. METHOTREXATE [Concomitant]
     Dates: start: 20110426
  5. ETODOLAC [Concomitant]
     Dates: start: 20091216
  6. CERTOLIZUMAB PEGOL [Suspect]
     Indication: RHEUMATOID ARTHRITIS
     Dosage: FROM 16-DEC-2009 TO 16-JUN-2010.
     Route: 058
     Dates: start: 20100630, end: 20110701
  7. LAFUTIDINE [Concomitant]
     Dates: start: 20070904
  8. ATORVASTATIN CALCIUM [Concomitant]
     Dates: start: 20080523
  9. KETOPROFEN [Concomitant]
     Dates: start: 20110112
  10. SODIUM RISEDRONATE HYDRATE [Concomitant]
     Dates: start: 20081008
  11. FOLIC ACID [Concomitant]
     Dates: start: 20091008

REACTIONS (1)
  - PNEUMONIA [None]
